FAERS Safety Report 7624553-5 (Version None)
Quarter: 2011Q3

REPORT INFORMATION
  Report Type: 
  Country: None (occurrence: None)
  Receive Date: 20110712
  Receipt Date: 20110705
  Transmission Date: 20111222
  Serious: Yes (Other)
  Sender: FDA-Public Use
  Company Number: 2011SP025390

PATIENT
  Age: 49 Year
  Sex: Male

DRUGS (4)
  1. DEPAKOTE ER [Concomitant]
  2. SAPHRIS [Suspect]
     Indication: BIPOLAR DISORDER
     Dosage: 10 MG;HS;SL
     Route: 059
     Dates: start: 20110314, end: 20110411
  3. PROZAC [Concomitant]
  4. KLONOPIN [Concomitant]

REACTIONS (3)
  - PHARYNGEAL OEDEMA [None]
  - RASH [None]
  - DYSPNOEA [None]
